FAERS Safety Report 6587950-5 (Version None)
Quarter: 2010Q1

REPORT INFORMATION
  Report Type: 
  Country: None (occurrence: None)
  Receive Date: 20100218
  Receipt Date: 20090812
  Transmission Date: 20100710
  Serious: No
  Sender: FDA-Public Use
  Company Number: US-BRISTOL-MYERS SQUIBB COMPANY-14738942

PATIENT

DRUGS (1)
  1. LYSODREN [Suspect]

REACTIONS (2)
  - HEPATIC ENZYME INCREASED [None]
  - MEDICATION RESIDUE [None]
